FAERS Safety Report 5783160-X (Version None)
Quarter: 2008Q2

REPORT INFORMATION
  Report Type: 
  Country: None (occurrence: None)
  Receive Date: 20080619
  Receipt Date: 20080619
  Transmission Date: 20081010
  Serious: No
  Sender: FDA-Public Use
  Company Number: None

PATIENT
  Age: 38 Year
  Sex: Male
  Weight: 64.4108 kg

DRUGS (1)
  1. ANDROGEL [Suspect]
     Indication: BLOOD TESTOSTERONE DECREASED
     Dosage: 75% OF MAXIMUM DOSAGE ONCE DAILY TOP
     Route: 061
     Dates: start: 20050909, end: 20060510

REACTIONS (1)
  - TESTICULAR ATROPHY [None]
